FAERS Safety Report 12070893 (Version 2)
Quarter: 2016Q1

REPORT INFORMATION
  Report Type: Report from Study
  Country: US (occurrence: US)
  Receive Date: 20160211
  Receipt Date: 20160304
  Transmission Date: 20160526
  Serious: No
  Sender: FDA-Public Use
  Company Number: US-AMGEN-USASL2016015286

PATIENT
  Age: 64 Year
  Sex: Female

DRUGS (1)
  1. ENBREL [Suspect]
     Active Substance: ETANERCEPT
     Indication: RHEUMATOID ARTHRITIS
     Dosage: 50 MG, QWK
     Route: 065
     Dates: start: 20160108

REACTIONS (9)
  - Head discomfort [Unknown]
  - Wound [Unknown]
  - Pain in extremity [Unknown]
  - Fatigue [Unknown]
  - Bronchitis [Recovered/Resolved]
  - Fall [Unknown]
  - Cough [Unknown]
  - Laryngitis [Unknown]
  - Laceration [Unknown]

NARRATIVE: CASE EVENT DATE: 2016
